FAERS Safety Report 25823685 (Version 1)
Quarter: 2025Q3

REPORT INFORMATION
  Report Type: Spontaneous
  Country: RU (occurrence: RU)
  Receive Date: 20250919
  Receipt Date: 20250919
  Transmission Date: 20251020
  Serious: Yes (Other)
  Sender: ROCHE
  Company Number: RU-ROCHE-10000384889

PATIENT
  Age: 38 Year

DRUGS (4)
  1. VEMURAFENIB [Suspect]
     Active Substance: VEMURAFENIB
     Indication: Malignant melanoma
     Route: 065
     Dates: start: 202404, end: 202412
  2. COBIMETINIB [Suspect]
     Active Substance: COBIMETINIB
     Indication: Malignant melanoma
     Route: 065
     Dates: start: 20240425, end: 20241230
  3. PACLITAXEL [Suspect]
     Active Substance: PACLITAXEL
     Indication: Malignant melanoma
     Route: 042
  4. CARBOPLATIN [Suspect]
     Active Substance: CARBOPLATIN
     Indication: Malignant melanoma
     Route: 042

REACTIONS (10)
  - Metastases to spine [Unknown]
  - Hydrothorax [Unknown]
  - Bone lesion [Unknown]
  - Spinal cord compression [Unknown]
  - Anaemia [Unknown]
  - Bone neoplasm [Unknown]
  - Paraparesis [Unknown]
  - Spinal decompression [Unknown]
  - Metastases to soft tissue [Unknown]
  - Lung neoplasm [Unknown]

NARRATIVE: CASE EVENT DATE: 20250401
